FAERS Safety Report 11696091 (Version 1)
Quarter: 2015Q4

REPORT INFORMATION
  Report Type: Spontaneous
  Country: US (occurrence: None)
  Receive Date: 20151103
  Receipt Date: 20151103
  Transmission Date: 20160304
  Serious: Yes (Life-Threatening, Hospitalization, Disabling)
  Sender: FDA-Public Use
  Company Number: None

PATIENT
  Age: 62 Year
  Sex: Female
  Weight: 127.01 kg

DRUGS (18)
  1. ADVAIR HFA [Concomitant]
     Active Substance: FLUTICASONE PROPIONATE\SALMETEROL XINAFOATE
  2. MOBIC [Concomitant]
     Active Substance: MELOXICAM
  3. VITAMIN D3 [Concomitant]
     Active Substance: CHOLECALCIFEROL
  4. PRILOSEC [Concomitant]
     Active Substance: OMEPRAZOLE MAGNESIUM
  5. NORCO [Concomitant]
     Active Substance: ACETAMINOPHEN\HYDROCODONE BITARTRATE
  6. ATIVAN [Concomitant]
     Active Substance: LORAZEPAM
  7. ASPIRIN. [Concomitant]
     Active Substance: ASPIRIN
  8. SYNTHROID [Concomitant]
     Active Substance: LEVOTHYROXINE SODIUM
  9. ALDACTONE [Concomitant]
     Active Substance: SPIRONOLACTONE
  10. PRINIVIL [Concomitant]
     Active Substance: LISINOPRIL
  11. LOPRESSOR [Concomitant]
     Active Substance: METOPROLOL TARTRATE
  12. SILDENAFIL. [Concomitant]
     Active Substance: SILDENAFIL
  13. TANZEUM [Suspect]
     Active Substance: ALBIGLUTIDE
     Indication: DIABETES MELLITUS
     Dates: start: 20140908, end: 20140908
  14. TRAVITAL [Concomitant]
  15. LASIX [Concomitant]
     Active Substance: FUROSEMIDE
  16. INSULIN [Concomitant]
     Active Substance: INSULIN NOS
  17. SINGULAIR [Concomitant]
     Active Substance: MONTELUKAST SODIUM
  18. CALCIUM, MAG, ZINC (COMBO) [Concomitant]

REACTIONS (5)
  - Acute pulmonary oedema [None]
  - Troponin increased [None]
  - Cardiac failure congestive [None]
  - Pulmonary hypertension [None]
  - Restrictive pulmonary disease [None]

NARRATIVE: CASE EVENT DATE: 20140908
